FAERS Safety Report 23238105 (Version 1)
Quarter: 2023Q4

REPORT INFORMATION
  Report Type: Spontaneous
  Country: CN (occurrence: CN)
  Receive Date: 20231129
  Receipt Date: 20231129
  Transmission Date: 20240110
  Serious: Yes (Other)
  Sender: FDA-Public Use
  Company Number: CN-SHANGHAI JUNSHI BIOSCIENCES CO., LTD.-CN2023008699

PATIENT

DRUGS (4)
  1. TORIPALIMAB [Suspect]
     Active Substance: TORIPALIMAB
     Indication: Bladder transitional cell carcinoma
     Dosage: 240 MG (D1)
     Route: 041
     Dates: start: 20230801, end: 20230801
  2. TORIPALIMAB [Suspect]
     Active Substance: TORIPALIMAB
     Dosage: 240 MG
     Route: 041
     Dates: start: 20230926
  3. DISITAMAB VEDOTIN [Suspect]
     Active Substance: DISITAMAB VEDOTIN
     Indication: Bladder transitional cell carcinoma
     Dosage: 110 MG
     Route: 041
     Dates: start: 20230801, end: 20230801
  4. DISITAMAB VEDOTIN [Suspect]
     Active Substance: DISITAMAB VEDOTIN
     Dosage: 110 MG
     Route: 041
     Dates: start: 20230926

REACTIONS (2)
  - Myelosuppression [Recovering/Resolving]
  - Off label use [Unknown]

NARRATIVE: CASE EVENT DATE: 20230801
